FAERS Safety Report 9344601 (Version 1)
Quarter: 2013Q2

REPORT INFORMATION
  Report Type: Spontaneous
  Country: IT (occurrence: IT)
  Receive Date: 20130612
  Receipt Date: 20130612
  Transmission Date: 20140414
  Serious: Yes (Other)
  Sender: FDA-Public Use
  Company Number: IT-ROXANE LABORATORIES, INC.-2013-RO-00931RO

PATIENT
  Age: 37 Year
  Sex: Male

DRUGS (5)
  1. OXCARBAZEPINE [Suspect]
     Indication: INSOMNIA
     Dosage: 900 MG
  2. ZOLPIDEM [Suspect]
     Indication: INSOMNIA
     Dosage: 10 MG
  3. QUETIAPINE FUMARATE [Suspect]
     Indication: INSOMNIA
     Dosage: 12.5 MG
  4. QUETIAPINE FUMARATE [Suspect]
     Dosage: 25 MG
  5. QUETIAPINE FUMARATE [Suspect]
     Dosage: 50 MG

REACTIONS (1)
  - Somnambulism [Recovered/Resolved]
